FAERS Safety Report 5058228-6 (Version None)
Quarter: 2006Q2

REPORT INFORMATION
  Report Type: 
  Country: None (occurrence: None)
  Receive Date: 20060622
  Receipt Date: 20060328
  Transmission Date: 20061013
  Serious: Yes (Death)
  Sender: FDA-Public Use
  Company Number: US-JNJFOC-20051204087

PATIENT
  Age: 41 Year
  Sex: Male
  Weight: 86.1834 kg

DRUGS (4)
  1. DURAGESIC-100 [Suspect]
     Indication: PROCEDURAL PAIN
     Dosage: 75 UG/HR, 1 IN 3 DAY, TRANSDERMAL
     Route: 062
     Dates: start: 20051001, end: 20051022
  2. ROXICET (ELIXIR) OXYCOCET [Concomitant]
  3. RAMIPRIL [Concomitant]
  4. PROVIGIL [Concomitant]

REACTIONS (1)
  - THERAPEUTIC AGENT TOXICITY [None]
